FAERS Safety Report 21690644 (Version 1)
Quarter: 2022Q4

REPORT INFORMATION
  Report Type: Spontaneous
  Country: ES (occurrence: ES)
  Receive Date: 20221206
  Receipt Date: 20221206
  Transmission Date: 20230113
  Serious: Yes (Other)
  Sender: FDA-Public Use
  Company Number: None

PATIENT
  Age: 68 Year
  Sex: Male

DRUGS (5)
  1. IMATINIB [Suspect]
     Active Substance: IMATINIB
     Indication: Gastrointestinal stromal tumour
     Dosage: 1 CP/DIA?1 PC/DAY
     Route: 048
     Dates: start: 20190805
  2. HYDROCHLOROTHIAZIDE\VALSARTAN [Suspect]
     Active Substance: HYDROCHLOROTHIAZIDE\VALSARTAN
     Indication: Hypertension
     Dosage: 80 MG/12.5 MG
     Route: 048
     Dates: start: 20220629, end: 20220812
  3. BOIK [Concomitant]
     Indication: Product used for unknown indication
     Route: 048
     Dates: start: 20201216
  4. FOSFATO NM 3,56 G POLVO PARA SOLUCION ORAL [Concomitant]
     Indication: Product used for unknown indication
     Route: 048
     Dates: start: 20200617
  5. MAGNOGENE 53 mg COMPRIMIDOS RECUBIERTOS [Concomitant]
     Indication: Product used for unknown indication
     Route: 048
     Dates: start: 20220523

REACTIONS (1)
  - Renal tubular dysfunction [Recovered/Resolved]

NARRATIVE: CASE EVENT DATE: 20220805
